FAERS Safety Report 6000227-1 (Version None)
Quarter: 2008Q4

REPORT INFORMATION
  Report Type: 
  Country: None (occurrence: None)
  Receive Date: 20081211
  Receipt Date: 20081211
  Transmission Date: 20090506
  Serious: No
  Sender: FDA-Public Use
  Company Number: None

PATIENT
  Sex: Male
  Weight: 83.64 kg

DRUGS (14)
  1. LISINOPRIL [Suspect]
     Dosage: 5MG TABLET ORAL
     Route: 048
     Dates: start: 20080314, end: 20081210
  2. ALLOPURINOL [Concomitant]
  3. ASPIRIN [Concomitant]
  4. ATENOLOL [Concomitant]
  5. COLCHINCINE [Concomitant]
  6. FLUTICASONE PROPIONATE [Concomitant]
  7. FOLTX (FOLIC ACID/PYRIDOSINE HCL/CYANOCOBALAMIN) [Concomitant]
  8. LEVOXYL [Concomitant]
  9. LIPITOR [Concomitant]
  10. METRONIDAZOLE [Concomitant]
  11. NASONEX [Concomitant]
  12. NORVASC [Concomitant]
  13. PLEXION SCT CREAM (SULFACETAMIDE SODIUM) [Concomitant]
  14. PROTONIX [Concomitant]

REACTIONS (1)
  - HYPERKALAEMIA [None]
